FAERS Safety Report 13482457 (Version 3)
Quarter: 2018Q1

REPORT INFORMATION
  Report Type: Report from Study
  Country: US (occurrence: US)
  Receive Date: 20170424
  Receipt Date: 20180117
  Transmission Date: 20180508
  Serious: No
  Sender: FDA-Public Use
  Company Number: US-AMGEN-USASL2017052775

PATIENT
  Age: 75 Year
  Sex: Female
  Weight: 72.57 kg

DRUGS (2)
  1. REPATHA [Suspect]
     Active Substance: EVOLOCUMAB
     Indication: HYPERCHOLESTEROLAEMIA
     Dosage: 140 MG, Q2WK (TWICE PER MONTH)
     Route: 030
     Dates: start: 20161018
  2. REPATHA [Suspect]
     Active Substance: EVOLOCUMAB
     Indication: LIPIDS INCREASED

REACTIONS (4)
  - Incorrect route of drug administration [Unknown]
  - Drug dose omission [Unknown]
  - Injection site reaction [Unknown]
  - Pain [Unknown]

NARRATIVE: CASE EVENT DATE: 2016
